FAERS Safety Report 6359010-X (Version None)
Quarter: 2009Q3

REPORT INFORMATION
  Report Type: 
  Country: None (occurrence: None)
  Receive Date: 20090917
  Receipt Date: 20090909
  Transmission Date: 20100115
  Serious: Yes (Other)
  Sender: FDA-Public Use
  Company Number: US-JNJCH-2009024378

PATIENT
  Age: 81 Year
  Sex: Male

DRUGS (1)
  1. ROGAINE 5% FOAM [Suspect]
     Indication: ALOPECIA
     Dosage: TEXT:1/2 CAPFUL TWICE A DAY
     Route: 061

REACTIONS (5)
  - APPLICATION SITE ERYTHEMA [None]
  - ERYTHEMA [None]
  - EYE DISORDER [None]
  - EYE SWELLING [None]
  - HYPERSENSITIVITY [None]
